FAERS Safety Report 4881197-6 (Version None)
Quarter: 2006Q1

REPORT INFORMATION
  Report Type: 
  Country: None (occurrence: None)
  Receive Date: 20060111
  Receipt Date: 20060111
  Transmission Date: 20060701
  Serious: Yes (Hospitalization)
  Sender: FDA-Public Use
  Company Number: None

PATIENT
  Sex: Female

DRUGS (1)
  1. GEMCITABINE [Suspect]
     Indication: CERVIX CARCINOMA
     Dosage: 350 MG/M2 WEEKLY IV
     Route: 042
     Dates: start: 20051214, end: 20060104

REACTIONS (3)
  - DIARRHOEA [None]
  - NAUSEA [None]
  - VOMITING [None]
